FAERS Safety Report 20004002 (Version 2)
Quarter: 2021Q4

REPORT INFORMATION
  Report Type: Report from Study
  Country: DE (occurrence: DE)
  Receive Date: 20211027
  Receipt Date: 20211105
  Transmission Date: 20220303
  Serious: Yes (Other)
  Sender: FDA-Public Use
  Company Number: DE-002147023-NVSC2021DE159649

PATIENT
  Sex: Female

DRUGS (5)
  1. LETROZOLE [Suspect]
     Active Substance: LETROZOLE
     Indication: Breast cancer metastatic
     Dosage: 2.5 MILLIGRAM, QD
     Route: 048
     Dates: start: 20190627
  2. KISQALI [Suspect]
     Active Substance: RIBOCICLIB
     Indication: Breast cancer metastatic
     Dosage: 600 MG (DAILY DOSE) (SCHEMA 21 DAYS INTAKE, 7 DAYS PAUSE)
     Route: 048
     Dates: start: 20190627, end: 20190717
  3. KISQALI [Suspect]
     Active Substance: RIBOCICLIB
     Dosage: 400 MG (DAILY DOSE) (SCHEMA 21 DAYS INTAKE, 7 DAYS PAUSE)
     Route: 048
     Dates: start: 20190718, end: 20190819
  4. KISQALI [Suspect]
     Active Substance: RIBOCICLIB
     Dosage: 600 MG (DAILY DOSE) (SCHEMA 21 DAYS INTAKE, 7 DAYS PAUSE)
     Route: 048
     Dates: start: 20190820, end: 20190925
  5. KISQALI [Suspect]
     Active Substance: RIBOCICLIB
     Dosage: 600 MG (DAILY DOSE) (SCHEMA 21 DAYS INTAKE, 7 DAYS PAUSE)
     Route: 048
     Dates: start: 20191003

REACTIONS (2)
  - Synovial sarcoma [Not Recovered/Not Resolved]
  - Metastases to spine [Not Recovered/Not Resolved]

NARRATIVE: CASE EVENT DATE: 20210609
